FAERS Safety Report 6858044-6 (Version None)
Quarter: 2010Q3

REPORT INFORMATION
  Report Type: 
  Country: None (occurrence: None)
  Receive Date: 20100719
  Receipt Date: 20080530
  Transmission Date: 20110219
  Serious: Yes (Other)
  Sender: FDA-Public Use
  Company Number: US-PFIZER INC-2008008247

PATIENT
  Sex: Female
  Weight: 56.7 kg

DRUGS (3)
  1. CHANTIX [Suspect]
     Indication: TOBACCO ABUSE
     Dates: start: 20071207
  2. ACTIVELLA [Concomitant]
  3. AMBIEN [Concomitant]

REACTIONS (6)
  - ANGER [None]
  - IRRITABILITY [None]
  - MOOD ALTERED [None]
  - NON-SMALL CELL LUNG CANCER [None]
  - PNEUMONECTOMY [None]
  - UNEVALUABLE EVENT [None]
